FAERS Safety Report 6735519-1 (Version None)
Quarter: 2010Q2

REPORT INFORMATION
  Report Type: 
  Country: None (occurrence: None)
  Receive Date: 20100521
  Receipt Date: 20100512
  Transmission Date: 20101027
  Serious: Yes (Hospitalization)
  Sender: FDA-Public Use
  Company Number: US-ASTRAZENECA-2010SE16224

PATIENT
  Sex: Male

DRUGS (11)
  1. NEXIUM [Suspect]
     Indication: GASTROOESOPHAGEAL REFLUX DISEASE
     Route: 048
  2. NEXIUM [Interacting]
     Indication: NAUSEA
     Route: 048
  3. BIOTENE [Interacting]
     Indication: DENTAL CARE
     Route: 004
     Dates: start: 20091101
  4. BIOTENE [Interacting]
     Indication: DRY MOUTH
     Route: 004
     Dates: start: 20091101
  5. BIOTENE [Interacting]
     Route: 065
     Dates: start: 20091101
  6. BIOTENE [Interacting]
     Route: 065
     Dates: start: 20091101
  7. COUMADIN [Interacting]
     Indication: ANTICOAGULANT THERAPY
     Route: 048
  8. LOTENSIN [Interacting]
     Indication: BLOOD PRESSURE
     Route: 048
  9. DILTIAZEM HCL [Interacting]
     Indication: TACHYCARDIA
     Route: 048
  10. ALLOPURINOL [Interacting]
     Indication: GOUT
     Route: 048
  11. ASPIRIN [Interacting]
     Route: 048

REACTIONS (8)
  - DIZZINESS [None]
  - DRUG INEFFECTIVE [None]
  - DRUG INTERACTION [None]
  - DRY MOUTH [None]
  - MALAISE [None]
  - NAUSEA [None]
  - NERVOUSNESS [None]
  - TREMOR [None]
